FAERS Safety Report 4953024-X (Version None)
Quarter: 2006Q1

REPORT INFORMATION
  Report Type: 
  Country: None (occurrence: None)
  Receive Date: 20060324
  Receipt Date: 20060316
  Transmission Date: 20060701
  Serious: Yes (Death, Life-Threatening)
  Sender: FDA-Public Use
  Company Number: JP-GLAXOSMITHKLINE-B0416162A

PATIENT
  Age: 1 Year
  Sex: Male
  Weight: 9 kg

DRUGS (21)
  1. ALKERAN [Suspect]
     Indication: CORD BLOOD TRANSPLANT THERAPY
     Dosage: 130MGM2 PER DAY
     Route: 042
  2. CICLOSPORIN [Suspect]
     Indication: IMMUNOSUPPRESSANT DRUG THERAPY
     Dosage: 13.3MG PER DAY
     Route: 065
     Dates: start: 20040308
  3. GASTER [Suspect]
     Route: 042
     Dates: start: 20040309, end: 20040402
  4. GRAN [Concomitant]
     Dates: start: 20040314, end: 20040414
  5. KYTRIL [Concomitant]
     Route: 042
     Dates: start: 20040302, end: 20040307
  6. GLYCEOL [Concomitant]
     Route: 042
     Dates: start: 20040302, end: 20040305
  7. COTRIM [Concomitant]
     Route: 048
     Dates: start: 20040302
  8. ZOVIRAX [Concomitant]
     Route: 048
     Dates: start: 20040302, end: 20040409
  9. FLUMARIN [Concomitant]
     Route: 042
     Dates: start: 20040303, end: 20040315
  10. FLUMARIN [Concomitant]
     Route: 042
     Dates: start: 20040419, end: 20040425
  11. MAXIPIME [Concomitant]
     Route: 042
     Dates: start: 20040315, end: 20040317
  12. CARBENIN [Concomitant]
     Route: 042
     Dates: start: 20040317, end: 20040318
  13. CARBENIN [Concomitant]
     Route: 042
     Dates: start: 20040425, end: 20040428
  14. UNASYN [Concomitant]
     Route: 042
     Dates: start: 20040317, end: 20040318
  15. PREDONINE [Concomitant]
     Route: 042
     Dates: start: 20040317, end: 20040402
  16. MODACIN [Concomitant]
     Route: 042
     Dates: start: 20040318, end: 20040320
  17. MODACIN [Concomitant]
     Route: 042
     Dates: start: 20040403, end: 20040419
  18. TOBRACIN [Concomitant]
     Route: 030
     Dates: start: 20040318, end: 20040320
  19. KAYTWO N [Concomitant]
     Route: 042
     Dates: start: 20040317, end: 20040319
  20. NEO-MINOPHAGEN-C [Concomitant]
     Route: 042
     Dates: start: 20040320, end: 20040405
  21. PREDONINE [Concomitant]
     Route: 048
     Dates: start: 20040402, end: 20040421

REACTIONS (2)
  - ACUTE LYMPHOCYTIC LEUKAEMIA [None]
  - CYTOMEGALOVIRUS VIRAEMIA [None]
